FAERS Safety Report 5348149-3 (Version None)
Quarter: 2007Q2

REPORT INFORMATION
  Report Type: 
  Country: None (occurrence: None)
  Receive Date: 20070606
  Receipt Date: 20070529
  Transmission Date: 20071010
  Serious: Yes (Other)
  Sender: FDA-Public Use
  Company Number: PL-SHR-PL-2007-013817

PATIENT
  Age: 20 Year
  Sex: Female

DRUGS (1)
  1. ULTRAVIST 300 [Suspect]
     Dosage: UNK, 1 DOSE

REACTIONS (1)
  - LOSS OF CONSCIOUSNESS [None]
